FAERS Safety Report 5470544-2 (Version None)
Quarter: 2007Q3

REPORT INFORMATION
  Report Type: 
  Country: None (occurrence: None)
  Receive Date: 20070927
  Receipt Date: 20070927
  Transmission Date: 20080115
  Serious: Yes (Life-Threatening, Hospitalization)
  Sender: FDA-Public Use
  Company Number: None

PATIENT
  Sex: Male
  Weight: 85 kg

DRUGS (14)
  1. NELARABINE 5 MG/ML GLAXOSMITHKLINE [Suspect]
     Indication: T-CELL LYMPHOMA REFRACTORY
     Dosage: 1275 MG DAILY X 5 DAYS IV
     Route: 042
     Dates: start: 20070823, end: 20070827
  2. BACTRIM DS [Concomitant]
  3. LOVENOX [Concomitant]
  4. AMLODIPINE [Concomitant]
  5. GRANISETRON  HCL [Concomitant]
  6. ESOMEPRAZOLE MAGNESIUM [Concomitant]
  7. DIPHENHYDRAMINE HCL [Concomitant]
  8. MORPHINE [Concomitant]
  9. NIFEDIPINE [Concomitant]
  10. OXYMETAZOLINE [Concomitant]
  11. VITAMIN K [Concomitant]
  12. ELECTROLYTE SUPPLEMENTS [Concomitant]
  13. SEDATION MEDICATION [Concomitant]
  14. LORAZEPAM [Concomitant]

REACTIONS (13)
  - AGGRESSION [None]
  - BILIRUBIN CONJUGATED INCREASED [None]
  - BLOOD BILIRUBIN INCREASED [None]
  - CEREBELLAR INFARCTION [None]
  - CONFUSIONAL STATE [None]
  - CSF WHITE BLOOD CELL COUNT POSITIVE [None]
  - DISORIENTATION [None]
  - HEPATIC ENZYME INCREASED [None]
  - INTERNATIONAL NORMALISED RATIO INCREASED [None]
  - METABOLIC ACIDOSIS [None]
  - NAUSEA [None]
  - SOMNOLENCE [None]
  - VOMITING [None]
